FAERS Safety Report 25564192 (Version 1)
Quarter: 2025Q3

REPORT INFORMATION
  Report Type: Spontaneous
  Country: US (occurrence: US)
  Receive Date: 20250716
  Receipt Date: 20250716
  Transmission Date: 20251021
  Serious: No
  Sender: ROCHE
  Company Number: US-ROCHE-10000335583

PATIENT
  Age: 12 Year
  Sex: Female

DRUGS (5)
  1. MYCOPHENOLATE MOFETIL [Suspect]
     Active Substance: MYCOPHENOLATE MOFETIL
     Indication: Lymphoid tissue hyperplasia
     Route: 065
  2. MYCOPHENOLATE MOFETIL [Suspect]
     Active Substance: MYCOPHENOLATE MOFETIL
     Indication: Idiopathic interstitial pneumonia
  3. ABATACEPT [Concomitant]
     Active Substance: ABATACEPT
  4. MABTHERA [Concomitant]
     Active Substance: RITUXIMAB
  5. PENTAMIDINE [Concomitant]
     Active Substance: PENTAMIDINE

REACTIONS (1)
  - Chronic sinusitis [Unknown]
